FAERS Safety Report 6520910-9 (Version None)
Quarter: 2009Q4

REPORT INFORMATION
  Report Type: 
  Country: None (occurrence: None)
  Receive Date: 20091229
  Receipt Date: 20091217
  Transmission Date: 20100525
  Serious: Yes (Death, Hospitalization)
  Sender: FDA-Public Use
  Company Number: CA-PFIZER INC-2005163246

PATIENT
  Age: 41 Year
  Sex: Male
  Weight: 77.3 kg

DRUGS (29)
  1. SUNITINIB MALATE [Suspect]
     Indication: GASTROINTESTINAL STROMAL TUMOUR
     Dosage: 25 MG, 2X/DAY
     Route: 048
     Dates: start: 20050726, end: 20051113
  2. SPIRONOLACTONE [Suspect]
     Indication: DIURETIC THERAPY
     Route: 065
     Dates: start: 20040401
  3. FUROSEMIDE [Suspect]
     Indication: DIURETIC THERAPY
     Route: 065
     Dates: start: 20040401
  4. FUROSEMIDE [Suspect]
     Dosage: UNK
     Route: 048
     Dates: start: 20040401, end: 20051210
  5. COUMADIN [Concomitant]
     Route: 048
     Dates: start: 20050501, end: 20051210
  6. ATIVAN [Concomitant]
     Route: 048
     Dates: start: 20040101, end: 20051210
  7. IRON [Concomitant]
     Route: 065
     Dates: start: 20050101, end: 20051210
  8. PARIET [Concomitant]
     Route: 048
     Dates: start: 20051001, end: 20051210
  9. PARIET [Concomitant]
     Route: 048
     Dates: start: 20051129
  10. TYLENOL (CAPLET) [Concomitant]
     Route: 048
     Dates: start: 20051017, end: 20051210
  11. MORPHINE [Concomitant]
     Route: 058
     Dates: start: 20051128, end: 20051210
  12. RITALIN [Concomitant]
     Route: 048
     Dates: start: 20051130, end: 20051210
  13. CITALOPRAM HYDROBROMIDE [Concomitant]
     Route: 048
     Dates: start: 20051129, end: 20051210
  14. MAGNESIUM [Concomitant]
     Route: 048
     Dates: start: 20051102, end: 20051210
  15. OXAZEPAM [Concomitant]
     Route: 048
     Dates: start: 20051128, end: 20051210
  16. DULCOLAX [Concomitant]
     Route: 065
     Dates: start: 20051128, end: 20051210
  17. ENOXAPARIN SODIUM [Concomitant]
     Route: 058
     Dates: start: 20051129, end: 20051210
  18. METHOTRIMEPRAZINE [Concomitant]
     Route: 048
     Dates: start: 20051101, end: 20051210
  19. LEVOTHYROXINE SODIUM [Concomitant]
     Route: 048
     Dates: start: 20051127, end: 20051210
  20. METHYLPHENIDATE HCL [Concomitant]
     Route: 048
     Dates: start: 20051130, end: 20051210
  21. DIMENHYDRINATE [Concomitant]
     Route: 048
     Dates: start: 20051128, end: 20051210
  22. SENNOSIDES [Concomitant]
     Route: 048
     Dates: start: 20051128, end: 20051210
  23. SPIRONOLACTONE [Concomitant]
     Route: 048
     Dates: start: 20040401, end: 20051210
  24. ELTROXIN [Concomitant]
     Route: 048
     Dates: start: 20051127, end: 20051210
  25. NOZINAN [Concomitant]
     Route: 048
     Dates: start: 20051129, end: 20051210
  26. PANTOPRAZOLE SODIUM [Concomitant]
     Route: 048
     Dates: start: 20051128, end: 20051210
  27. IRON SULFATETHIAMIN COMPOUND TAB [Concomitant]
     Route: 048
     Dates: start: 20051128, end: 20051210
  28. GRAVOL TAB [Concomitant]
     Route: 048
     Dates: start: 20031128, end: 20051210
  29. CELEXA [Concomitant]
     Route: 048
     Dates: start: 20051128, end: 20051210

REACTIONS (8)
  - ANAEMIA [None]
  - ASCITES [None]
  - CONSTIPATION [None]
  - DEPRESSION [None]
  - DISEASE PROGRESSION [None]
  - FATIGUE [None]
  - GASTROINTESTINAL STROMAL TUMOUR [None]
  - HYPONATRAEMIA [None]
